FAERS Safety Report 21958706 (Version 1)
Quarter: 2023Q1

REPORT INFORMATION
  Report Type: Spontaneous
  Country: US (occurrence: US)
  Receive Date: 20230206
  Receipt Date: 20230206
  Transmission Date: 20230418
  Serious: Yes (Other)
  Sender: FDA-Public Use
  Company Number: US-002147023-NVSC2023US018534

PATIENT
  Age: 18 Year
  Sex: Female

DRUGS (17)
  1. TIGECYCLINE [Suspect]
     Active Substance: TIGECYCLINE
     Indication: Bronchiectasis
     Dosage: UNK
     Route: 042
     Dates: start: 202210
  2. TIGECYCLINE [Suspect]
     Active Substance: TIGECYCLINE
     Indication: Mycobacterium abscessus infection
  3. TIGECYCLINE [Suspect]
     Active Substance: TIGECYCLINE
     Indication: Lung disorder
  4. TIGECYCLINE [Suspect]
     Active Substance: TIGECYCLINE
     Indication: Weight decreased
  5. TIGECYCLINE [Suspect]
     Active Substance: TIGECYCLINE
     Indication: Lung opacity
  6. AMIKACIN [Suspect]
     Active Substance: AMIKACIN
     Indication: Mycobacterium abscessus infection
     Dosage: UNK
     Route: 042
     Dates: start: 202210
  7. AMIKACIN [Suspect]
     Active Substance: AMIKACIN
     Indication: Bronchiectasis
  8. AMIKACIN [Suspect]
     Active Substance: AMIKACIN
     Indication: Lung disorder
  9. AMIKACIN [Suspect]
     Active Substance: AMIKACIN
     Indication: Weight decreased
  10. AMIKACIN [Suspect]
     Active Substance: AMIKACIN
     Indication: Lung opacity
  11. LINEZOLID [Suspect]
     Active Substance: LINEZOLID
     Indication: Mycobacterium abscessus infection
     Dosage: UNK
     Route: 048
     Dates: start: 202210
  12. LINEZOLID [Suspect]
     Active Substance: LINEZOLID
     Indication: Bronchiectasis
  13. LINEZOLID [Suspect]
     Active Substance: LINEZOLID
     Indication: Lung disorder
  14. LINEZOLID [Suspect]
     Active Substance: LINEZOLID
     Indication: Weight decreased
  15. LINEZOLID [Suspect]
     Active Substance: LINEZOLID
     Indication: Lung opacity
  16. OMADACYCLINE [Suspect]
     Active Substance: OMADACYCLINE
     Indication: Mycobacterium abscessus infection
     Dosage: UNK
     Route: 042
  17. OMADACYCLINE [Suspect]
     Active Substance: OMADACYCLINE
     Dosage: UNK
     Route: 048

REACTIONS (6)
  - Mycobacterium abscessus infection [Not Recovered/Not Resolved]
  - Forced expiratory volume decreased [Unknown]
  - Breath sounds abnormal [Unknown]
  - Multiple-drug resistance [Unknown]
  - Vomiting [Unknown]
  - Nausea [Unknown]
